FAERS Safety Report 4376314-0 (Version None)
Quarter: 2004Q2

REPORT INFORMATION
  Report Type: 
  Country: None (occurrence: None)
  Receive Date: 20040608
  Receipt Date: 20030127
  Transmission Date: 20050107
  Serious: Yes (Other)
  Sender: FDA-Public Use
  Company Number: 200310314BCC

PATIENT
  Sex: Male

DRUGS (1)
  1. ALEVE [Suspect]
     Indication: ANALGESIC EFFECT
     Dosage: ORAL
     Route: 048
     Dates: start: 20030125

REACTIONS (4)
  - HYPERSENSITIVITY [None]
  - LIP DRY [None]
  - OROPHARYNGEAL SWELLING [None]
  - SWELLING FACE [None]
